FAERS Safety Report 8407033-9 (Version None)
Quarter: 2012Q2

REPORT INFORMATION
  Report Type: 
  Country: None (occurrence: None)
  Receive Date: 20120604
  Receipt Date: 20120524
  Transmission Date: 20120825
  Serious: Yes (Other)
  Sender: FDA-Public Use
  Company Number: JP-SANOFI-AVENTIS-2012SA026372

PATIENT
  Age: 84 Year
  Sex: Female

DRUGS (11)
  1. TRICHLORMETHIAZIDE [Concomitant]
     Route: 048
     Dates: start: 20110411
  2. PLAVIX [Suspect]
     Indication: ANGINA PECTORIS
     Dosage: DATE FROM- BEFORE 2008
     Route: 048
     Dates: start: 20070814, end: 20120514
  3. ADALAT CC [Concomitant]
     Route: 048
     Dates: start: 20070801
  4. SIGMART [Concomitant]
     Route: 048
     Dates: start: 20070801
  5. LANSOPRAZOLE [Concomitant]
     Route: 048
     Dates: start: 20070801
  6. ASPIRIN [Concomitant]
     Route: 048
     Dates: start: 20070801
  7. PRAVASTATIN SODIUM [Concomitant]
     Route: 048
     Dates: start: 20070801
  8. LORAZEPAM [Concomitant]
  9. MAGNESIUM OXIDE [Concomitant]
     Route: 048
     Dates: start: 20070801
  10. OLMESARTAN MEDOXOMIL [Concomitant]
     Indication: HYPERTENSION
     Dates: start: 20110401, end: 20110601
  11. ARICEPT [Concomitant]

REACTIONS (3)
  - LOSS OF CONSCIOUSNESS [None]
  - DEPRESSED LEVEL OF CONSCIOUSNESS [None]
  - HYPNAGOGIC HALLUCINATION [None]
